FAERS Safety Report 14405833 (Version 2)
Quarter: 2022Q1

REPORT INFORMATION
  Report Type: Spontaneous
  Country: CA (occurrence: CA)
  Receive Date: 20180118
  Receipt Date: 20220222
  Transmission Date: 20220423
  Serious: Yes (Hospitalization, Other)
  Sender: FDA-Public Use
  Company Number: CA-PURDUE-CAN-2018-0008309

PATIENT
  Age: 62 Year
  Sex: Female

DRUGS (10)
  1. HYDROMORPHONE HYDROCHLORIDE [Suspect]
     Active Substance: HYDROMORPHONE HYDROCHLORIDE
     Indication: Pain
     Dosage: 2 MG, UNK
     Route: 065
  2. HYDROMORPHONE [Suspect]
     Active Substance: HYDROMORPHONE
     Indication: Rheumatoid arthritis
     Dosage: 3 MG, BID
     Route: 065
  3. HYDROMORPHONE [Suspect]
     Active Substance: HYDROMORPHONE
     Dosage: 3 MG, BID
     Route: 065
  4. CELEBREX [Suspect]
     Active Substance: CELECOXIB
     Indication: Rheumatoid arthritis
     Dosage: UNK
     Route: 065
  5. ENBREL [Suspect]
     Active Substance: ETANERCEPT
     Indication: Rheumatoid arthritis
     Dosage: UNK
     Route: 058
  6. LEFLUNOMIDE [Suspect]
     Active Substance: LEFLUNOMIDE
     Indication: Rheumatoid arthritis
     Dosage: UNK
     Route: 065
  7. METHOTREXATE SODIUM [Suspect]
     Active Substance: METHOTREXATE SODIUM
     Indication: Rheumatoid arthritis
     Dosage: UNK
     Route: 065
  8. ORENCIA [Suspect]
     Active Substance: ABATACEPT
     Indication: Rheumatoid arthritis
     Dosage: UNK
     Route: 065
  9. REMICADE [Suspect]
     Active Substance: INFLIXIMAB
     Indication: Rheumatoid arthritis
     Dosage: UNK
     Route: 065
  10. SIMPONI [Suspect]
     Active Substance: GOLIMUMAB
     Indication: Rheumatoid arthritis
     Dosage: UNK
     Route: 065

REACTIONS (5)
  - Pneumonia [Unknown]
  - Lower respiratory tract infection [Unknown]
  - Nausea [Unknown]
  - Therapeutic response decreased [Unknown]
  - Walking aid user [Unknown]
